FAERS Safety Report 17143994 (Version 2)
Quarter: 2019Q4

REPORT INFORMATION
  Report Type: Spontaneous
  Country: FI (occurrence: FI)
  Receive Date: 20191212
  Receipt Date: 20191226
  Transmission Date: 20200122
  Serious: Yes (Other)
  Sender: FDA-Public Use
  Company Number: NVSC2019FI064574

PATIENT
  Sex: Male

DRUGS (2)
  1. VOLTAREN RAPID [Suspect]
     Active Substance: DICLOFENAC POTASSIUM
     Indication: BACK PAIN
     Dosage: UNK
     Route: 065
     Dates: start: 2000
  2. NORFLEX [Concomitant]
     Active Substance: ORPHENADRINE CITRATE
     Indication: BACK PAIN
     Dosage: UNK
     Route: 065

REACTIONS (1)
  - Erectile dysfunction [Unknown]

NARRATIVE: CASE EVENT DATE: 2000
